FAERS Safety Report 24634489 (Version 1)
Quarter: 2024Q4

REPORT INFORMATION
  Report Type: Spontaneous
  Country: CN (occurrence: CN)
  Receive Date: 20241119
  Receipt Date: 20241119
  Transmission Date: 20250115
  Serious: Yes (Hospitalization)
  Sender: SANDOZ
  Company Number: CN-002147023-NVSC2024CN219811

PATIENT
  Age: 4 Year
  Sex: Female
  Weight: 17.5 kg

DRUGS (1)
  1. DEXAMETHASONE\TOBRAMYCIN [Suspect]
     Active Substance: DEXAMETHASONE\TOBRAMYCIN
     Indication: Postoperative care
     Dosage: 1.000 DRP, TID
     Route: 047
     Dates: start: 20241104, end: 20241109

REACTIONS (5)
  - Facial pain [Recovered/Resolved]
  - Oral pain [Recovered/Resolved]
  - Chest pain [Recovered/Resolved]
  - Vomiting projectile [Recovered/Resolved]
  - Ocular hypertension [Recovered/Resolved]

NARRATIVE: CASE EVENT DATE: 20241108
